FAERS Safety Report 13927829 (Version 2)
Quarter: 2017Q4

REPORT INFORMATION
  Report Type: Spontaneous
  Country: GB (occurrence: GB)
  Receive Date: 20170831
  Receipt Date: 20171103
  Transmission Date: 20180320
  Serious: Yes (Other)
  Sender: FDA-Public Use
  Company Number: GB-BAXTER-2017BAX030737

PATIENT

DRUGS (3)
  1. FLOLAN [Suspect]
     Active Substance: EPOPROSTENOL SODIUM
     Indication: ANTICOAGULANT THERAPY
     Dosage: CONCENTRATION 0.2 MG IN 20 MLS
     Route: 010
  2. SODIUM CHLORIDE 0.45% W/V AND GLUCOSE 5.0% W/V SOLUTION FOR INFUSION B [Suspect]
     Active Substance: DEXTROSE MONOHYDRATE\SODIUM CHLORIDE
     Indication: HAEMODIALYSIS
     Route: 010
  3. PHOXILIUM [Suspect]
     Active Substance: CALCIUM CL\MAGNESIUM CL\POTASSIUM CL\SODIUM BICAR\SODIUM CL\SODIUM PHOSPHATE,DIB
     Indication: HAEMODIALYSIS
     Route: 010

REACTIONS (1)
  - Haemorrhage [Unknown]

NARRATIVE: CASE EVENT DATE: 201708
